FAERS Safety Report 23143268 (Version 3)
Quarter: 2024Q1

REPORT INFORMATION
  Report Type: Spontaneous
  Country: US (occurrence: US)
  Receive Date: 20231103
  Receipt Date: 20240118
  Transmission Date: 20240409
  Serious: No
  Sender: FDA-Public Use
  Company Number: US-ELI_LILLY_AND_COMPANY-US202311001147

PATIENT
  Age: 54 Year

DRUGS (1)
  1. TALTZ [Suspect]
     Active Substance: IXEKIZUMAB
     Indication: Psoriatic arthropathy
     Dosage: 80 MG, OTHER (ONCE EVERY FOUR WEEK)
     Route: 058

REACTIONS (2)
  - Urinary tract infection [Recovering/Resolving]
  - Abdominal pain [Recovering/Resolving]
